FAERS Safety Report 13318025 (Version 1)
Quarter: 2017Q1

REPORT INFORMATION
  Report Type: Spontaneous
  Country: US (occurrence: US)
  Receive Date: 20170309
  Receipt Date: 20170309
  Transmission Date: 20170428
  Serious: No
  Sender: FDA-Public Use
  Company Number: None

PATIENT
  Age: 60 Year
  Sex: Male
  Weight: 81 kg

DRUGS (15)
  1. TESTOSTERONE CREAM [Concomitant]
     Active Substance: TESTOSTERONE
  2. OXYCODONE [Concomitant]
     Active Substance: OXYCODONE
  3. OXYCODONE HCL 15 MG TABLET [Suspect]
     Active Substance: OXYCODONE HYDROCHLORIDE
     Indication: PAIN
     Dosage: ?          QUANTITY:1 TABLET(S);?
     Route: 048
  4. CLONIDINE. [Concomitant]
     Active Substance: CLONIDINE
  5. ALLERGY (ANTIGEN) INJECTIOINS [Concomitant]
  6. STOOL SOFTENER (DOCUSATE) [Concomitant]
     Active Substance: DOCUSATE
  7. LAXATIVES [Concomitant]
     Active Substance: UNSPECIFIED INGREDIENT
  8. SAW PALMETTO [Concomitant]
     Active Substance: SAW PALMETTO
  9. ZYRTEC [Concomitant]
     Active Substance: CETIRIZINE HYDROCHLORIDE
  10. BENADRYL [Concomitant]
     Active Substance: DIPHENHYDRAMINE HYDROCHLORIDE
  11. SUDAFED [Concomitant]
     Active Substance: PSEUDOEPHEDRINE HYDROCHLORIDE
  12. TIZANIDINE. [Concomitant]
     Active Substance: TIZANIDINE
  13. FENTANYL TD [Concomitant]
  14. ONE A DAY MULTIVITAMIN-SENIOR [Concomitant]
  15. FISH OIL [Concomitant]
     Active Substance: FISH OIL

REACTIONS (5)
  - Pain [None]
  - Product size issue [None]
  - Drug effect decreased [None]
  - Product substitution issue [None]
  - Drug tolerance [None]

NARRATIVE: CASE EVENT DATE: 20161215
